FAERS Safety Report 14703529 (Version 1)
Quarter: 2018Q2

REPORT INFORMATION
  Report Type: Spontaneous
  Country: US (occurrence: US)
  Receive Date: 20180402
  Receipt Date: 20180402
  Transmission Date: 20180711
  Serious: No
  Sender: FDA-Public Use
  Company Number: US-BAYER-2018-054118

PATIENT
  Sex: Female
  Weight: 66 kg

DRUGS (5)
  1. COCONUT OIL [Concomitant]
     Active Substance: COCONUT OIL
  2. INULIN [Concomitant]
     Active Substance: INULIN
  3. MIRALAX [Suspect]
     Active Substance: POLYETHYLENE GLYCOL 3350
     Indication: GASTROINTESTINAL DISORDER
     Dosage: 1 DF, BID
     Route: 048
  4. L-GLUTAMINE [GLUTAMIC ACID] [Concomitant]
  5. INOSITOL [Concomitant]
     Active Substance: INOSITOL

REACTIONS (5)
  - Constipation [Unknown]
  - Off label use [Unknown]
  - Diarrhoea [Unknown]
  - Wrong technique in product usage process [Unknown]
  - Product use issue [Unknown]
